FAERS Safety Report 9140265 (Version 2)
Quarter: 2013Q1

REPORT INFORMATION
  Report Type: Spontaneous
  Country: CL (occurrence: CL)
  Receive Date: 20130305
  Receipt Date: 20130311
  Transmission Date: 20140127
  Serious: Yes (Hospitalization, Other)
  Sender: FDA-Public Use
  Company Number: PHHY2013CL021095

PATIENT
  Age: 40 Year
  Sex: Male

DRUGS (2)
  1. LEPONEX [Suspect]
     Indication: AFFECTIVE DISORDER
     Dosage: 50 MG, QD
     Dates: start: 20130215
  2. LEPONEX [Suspect]
     Indication: OFF LABEL USE

REACTIONS (1)
  - Lumbar hernia [Recovering/Resolving]
